FAERS Safety Report 14887226 (Version 1)
Quarter: 2018Q2

REPORT INFORMATION
  Report Type: Spontaneous
  Country: US (occurrence: US)
  Receive Date: 20180513
  Receipt Date: 20180513
  Transmission Date: 20180711
  Serious: No
  Sender: FDA-Public Use
  Company Number: US-ASTRAZENECA-2018SE60034

PATIENT
  Age: 57 Year
  Sex: Male

DRUGS (2)
  1. ZOMIG [Suspect]
     Active Substance: ZOLMITRIPTAN
     Indication: MIGRAINE
     Dosage: UPTO 4 TIMES A WEEK
     Route: 045
  2. ZOMIG [Suspect]
     Active Substance: ZOLMITRIPTAN
     Indication: MIGRAINE
     Dosage: 2.5 MG NASAL SPRAY, 1 SPRAY INTRANASALLY AS NEEDED
     Route: 045

REACTIONS (2)
  - Product use issue [Unknown]
  - Migraine [Not Recovered/Not Resolved]
